FAERS Safety Report 4664529-3 (Version None)
Quarter: 2005Q2

REPORT INFORMATION
  Report Type: 
  Country: None (occurrence: None)
  Receive Date: 20050518
  Receipt Date: 20050506
  Transmission Date: 20051028
  Serious: Yes (Hospitalization)
  Sender: FDA-Public Use
  Company Number: US-AMGEN-US132184

PATIENT
  Sex: Male
  Weight: 75 kg

DRUGS (3)
  1. DARBEPOETIN ALFA [Suspect]
     Indication: MYELODYSPLASTIC SYNDROME
     Route: 058
     Dates: start: 20050404
  2. MULTI-VITAMINS [Concomitant]
  3. ALEVE [Concomitant]

REACTIONS (4)
  - CALCULUS URETERIC [None]
  - DIARRHOEA [None]
  - HAEMOGLOBIN DECREASED [None]
  - HYDRONEPHROSIS [None]
